FAERS Safety Report 18762004 (Version 1)
Quarter: 2021Q1

REPORT INFORMATION
  Report Type: Spontaneous
  Country: US (occurrence: US)
  Receive Date: 20210119
  Receipt Date: 20210119
  Transmission Date: 20210419
  Serious: Yes (Other)
  Sender: FDA-Public Use
  Company Number: None

PATIENT
  Age: 41 Year
  Sex: Female

DRUGS (2)
  1. NOVOLOG MIX 70/30 [Suspect]
     Active Substance: INSULIN ASPART
     Indication: DIABETES MELLITUS
     Route: 058
     Dates: start: 20201117, end: 20210118
  2. NOVOLOG FLEXPEN 100U/ML [Concomitant]
     Dates: start: 20210118

REACTIONS (3)
  - Device malfunction [None]
  - Drug dose omission by device [None]
  - Blood glucose increased [None]

NARRATIVE: CASE EVENT DATE: 20210114
